FAERS Safety Report 8274033-1 (Version None)
Quarter: 2012Q2

REPORT INFORMATION
  Report Type: 
  Country: None (occurrence: None)
  Receive Date: 20120411
  Receipt Date: 20120409
  Transmission Date: 20120825
  Serious: Yes (Death, Hospitalization, Other)
  Sender: FDA-Public Use
  Company Number: PHHY2012BR030399

PATIENT
  Sex: Female

DRUGS (12)
  1. ACETYLSALICYLIC ACID SRT [Concomitant]
     Indication: ANTIPLATELET THERAPY
     Dosage: UNK
     Dates: start: 20110101
  2. GLYBURIDE [Concomitant]
     Indication: DIABETES MELLITUS
     Dosage: UNK
     Dates: start: 20070101
  3. BROMAZEPAM [Concomitant]
     Indication: SLEEP DISORDER
     Dosage: UNK
     Dates: end: 20070101
  4. DIVELOL [Concomitant]
     Dosage: UNK
     Dates: start: 20070101
  5. KARSIL [Concomitant]
     Indication: CARDIOMEGALY
     Dosage: UNK
     Dates: start: 20070101
  6. DIOVAN [Suspect]
     Indication: HYPERTENSION
     Dosage: 2 DF (80 MG), DAILY
     Route: 048
     Dates: start: 20070101, end: 20110101
  7. INSULIN [Concomitant]
     Indication: DIABETES MELLITUS
     Dosage: UNK
     Dates: start: 20060101
  8. CLORANA [Concomitant]
     Indication: DIURETIC THERAPY
  9. CLONAZEPAM [Concomitant]
     Indication: SLEEP DISORDER
     Dosage: UNK
     Dates: start: 20070101
  10. DIOVAN [Suspect]
     Dosage: 1 DF (160 MG), DAILY
     Dates: start: 20110101
  11. COMBIRON B 12 [Concomitant]
     Indication: ANAEMIA
     Dosage: UNK
     Dates: start: 20110101
  12. LEVOTHYROXINE SODIUM [Concomitant]
     Indication: HYPOTHYROIDISM
     Dosage: UNK
     Dates: start: 20060101

REACTIONS (8)
  - CHROMATURIA [None]
  - NEOPLASM MALIGNANT [None]
  - ASTHENIA [None]
  - CARDIO-RESPIRATORY ARREST [None]
  - METASTASES TO LUNG [None]
  - YELLOW SKIN [None]
  - APHASIA [None]
  - GAIT DISTURBANCE [None]
